FAERS Safety Report 20935465 (Version 2)
Quarter: 2022Q2

REPORT INFORMATION
  Report Type: Spontaneous
  Country: KR (occurrence: None)
  Receive Date: 20220609
  Receipt Date: 20220621
  Transmission Date: 20220721
  Serious: Yes (Other)
  Sender: FDA-Public Use
  Company Number: KR-ROCHE-3111060

PATIENT
  Sex: Female

DRUGS (1)
  1. KADCYLA [Suspect]
     Active Substance: ADO-TRASTUZUMAB EMTANSINE
     Indication: Breast cancer
     Route: 042

REACTIONS (8)
  - Thrombocytopenia [Unknown]
  - Fatigue [Unknown]
  - Epistaxis [Unknown]
  - Contusion [Unknown]
  - Thrombocytopenic purpura [Unknown]
  - Gingival bleeding [Unknown]
  - Tinnitus [Unknown]
  - Ear pain [Unknown]
